FAERS Safety Report 9380820 (Version 1)
Quarter: 2013Q3

REPORT INFORMATION
  Report Type: Spontaneous
  Country: US (occurrence: US)
  Receive Date: 20130702
  Receipt Date: 20130702
  Transmission Date: 20140515
  Serious: Yes (Other)
  Sender: FDA-Public Use
  Company Number: US-RB-055494-13

PATIENT
  Age: 25 Year
  Sex: Male

DRUGS (1)
  1. SUBOXONE FILM [Suspect]
     Indication: DRUG DEPENDENCE
     Dosage: SUBOXONE FILM
     Route: 060
     Dates: start: 201206, end: 20130618

REACTIONS (3)
  - Fall [Recovered/Resolved]
  - Forearm fracture [Not Recovered/Not Resolved]
  - Pain in extremity [Not Recovered/Not Resolved]
